FAERS Safety Report 11356876 (Version 1)
Quarter: 2015Q3

REPORT INFORMATION
  Report Type: Spontaneous
  Country: US (occurrence: US)
  Receive Date: 20150803
  Receipt Date: 20150803
  Transmission Date: 20151125
  Serious: No
  Sender: FDA-Public Use
  Company Number: US-ELI_LILLY_AND_COMPANY-US201209005153

PATIENT
  Sex: Male

DRUGS (1)
  1. STRATTERA [Suspect]
     Active Substance: ATOMOXETINE HYDROCHLORIDE
     Indication: ATTENTION DEFICIT/HYPERACTIVITY DISORDER
     Dosage: UNK, QD

REACTIONS (6)
  - Urinary hesitation [Recovered/Resolved]
  - Urinary incontinence [Recovered/Resolved]
  - Scrotal swelling [Recovered/Resolved]
  - Nocturia [Recovered/Resolved]
  - Premature ejaculation [Recovered/Resolved]
  - Nasopharyngitis [Recovered/Resolved]
